FAERS Safety Report 16493846 (Version 1)
Quarter: 2019Q2

REPORT INFORMATION
  Report Type: Spontaneous
  Country: GB (occurrence: GB)
  Receive Date: 20190628
  Receipt Date: 20190628
  Transmission Date: 20190711
  Serious: Yes (Other)
  Sender: FDA-Public Use
  Company Number: GB-TEVA-2019-GB-1070701

PATIENT
  Age: 87 Year
  Sex: Male
  Weight: 63 kg

DRUGS (23)
  1. MIRTAZAPINE. [Concomitant]
     Active Substance: MIRTAZAPINE
     Dosage: 1 DF PER DAY AT NIGHT
     Dates: start: 20181130
  2. OSELTAMIVIR [Suspect]
     Active Substance: OSELTAMIVIR
     Dosage: 30 MG
     Dates: start: 20190409
  3. MONOMIL XL [Concomitant]
     Active Substance: ISOSORBIDE MONONITRATE
     Dosage: 2 DF PER DAY
     Dates: start: 20181130
  4. NYSTATIN. [Concomitant]
     Active Substance: NYSTATIN
     Dosage: 4 ML PER DAY
     Dates: start: 20190213, end: 20190220
  5. SALBUTAMOL [Concomitant]
     Active Substance: ALBUTEROL
     Dosage: INHALE 1-2 PUFFS EVERY 4 HRS AS NEEDED VIA AEROCHAMBER
     Dates: start: 20181130
  6. PARACETAMOL [Concomitant]
     Active Substance: ACETAMINOPHEN
     Dosage: TAKE TWO 4 TIMES/DAY WHEN REQUIRED
     Dates: start: 20181130
  7. AMOXICILLIN. [Concomitant]
     Active Substance: AMOXICILLIN
     Dosage: 3 DF PER DAY
     Dates: start: 20190315, end: 20190322
  8. DICLOFENAC DIETHYLAMINE [Concomitant]
     Active Substance: DICLOFENAC DIETHYLAMINE
     Dosage: 3 DF PER DAY APPLY 3 TIMES/DAY
     Dates: start: 20190326, end: 20190402
  9. OSELTAMIVIR [Suspect]
     Active Substance: OSELTAMIVIR
     Dosage: 30MG
     Dates: start: 20190315, end: 20190325
  10. MEMANTINE. [Concomitant]
     Active Substance: MEMANTINE
     Dosage: 1 DF PER DAY
     Dates: start: 20190326, end: 20190327
  11. OMEPRAZOLE. [Concomitant]
     Active Substance: OMEPRAZOLE
     Dosage: 1 DF PER DAY
     Dates: start: 20181130
  12. MEBEVERINE HYDROCHLORIDE [Concomitant]
     Active Substance: MEBEVERINE HYDROCHLORIDE
     Dosage: 3 DF PER DAY
     Dates: start: 20181130
  13. AMLODIPINE [Concomitant]
     Active Substance: AMLODIPINE BESYLATE
     Dosage: 1 DF PER DAY
     Dates: start: 20181130
  14. CASSIA [Concomitant]
     Dosage: TAKE 1 OR 2 AT NIGHT
     Dates: start: 20190227, end: 20190327
  15. LOSARTAN. [Concomitant]
     Active Substance: LOSARTAN
     Dosage: 1 DF PER DAY
     Dates: start: 20181130
  16. ACETYLSALICYLIC ACID [Concomitant]
     Active Substance: ASPIRIN
     Dosage: 1 DF PER DAY
     Dates: start: 20181130
  17. BISOPROLOL [Concomitant]
     Active Substance: BISOPROLOL
     Dosage: 1 DF PER DAY
     Dates: start: 20181130
  18. ATORVASTATIN [Concomitant]
     Active Substance: ATORVASTATIN
     Dosage: 1 DF PER DAY AT NIGHT
     Dates: start: 20181130
  19. ADCAL [Concomitant]
     Dosage: 4 DF PER DAY
     Dates: start: 20181130
  20. MOVICOL [Concomitant]
     Active Substance: POLYETHYLENE GLYCOL 3350\POTASSIUM CHLORIDE\SODIUM BICARBONATE\SODIUM CHLORIDE
     Dosage: 1 DF FOR 2 DAYS EVERY OTHER DAY
     Dates: start: 20190326
  21. FLUTICASONE PROPIONATE. [Concomitant]
     Active Substance: FLUTICASONE PROPIONATE
     Dosage: 2 DF PER DAY
     Dates: start: 20190403
  22. CITALOPRAM [Concomitant]
     Active Substance: CITALOPRAM HYDROBROMIDE
     Dosage: EACH MORNING 1 DF
     Dates: start: 20190326
  23. BUPRENORPHINE. [Concomitant]
     Active Substance: BUPRENORPHINE
     Dosage: 1 DF PER WEEK
     Dates: start: 20190326

REACTIONS (1)
  - Confusional state [Recovering/Resolving]

NARRATIVE: CASE EVENT DATE: 20190409
